FAERS Safety Report 9708007 (Version 2)
Quarter: 2013Q4

REPORT INFORMATION
  Report Type: Spontaneous
  Country: CA (occurrence: CA)
  Receive Date: 20131125
  Receipt Date: 20131125
  Transmission Date: 20140711
  Serious: Yes (Life-Threatening, Other)
  Sender: FDA-Public Use
  Company Number: CA-ROCHE-GNE249527

PATIENT
  Age: 47 Year
  Sex: Female
  Weight: 77.08 kg

DRUGS (4)
  1. RITUXAN [Suspect]
     Indication: RHEUMATOID ARTHRITIS
     Dosage: 1000 MG, DAYS 1+15
     Route: 042
     Dates: start: 20071005, end: 20080619
  2. BENADRYL (CANADA) [Concomitant]
     Indication: PREMEDICATION
     Dosage: UNK
     Route: 065
     Dates: start: 20071005, end: 20081223
  3. SOLU-MEDROL [Concomitant]
     Indication: PREMEDICATION
     Dosage: UNK
     Route: 042
     Dates: start: 20071005, end: 20081223
  4. TYLENOL #1 (CANADA) [Concomitant]
     Indication: PREMEDICATION
     Dosage: UNK
     Route: 048
     Dates: start: 20071005, end: 20081223

REACTIONS (12)
  - Anaphylactic shock [Recovered/Resolved]
  - Body temperature increased [Recovered/Resolved]
  - Dysphagia [Recovered/Resolved]
  - Dysphonia [Recovered/Resolved]
  - Erythema [Recovered/Resolved]
  - Hypotension [Recovered/Resolved]
  - Nausea [Recovered/Resolved]
  - Pyrexia [Recovered/Resolved]
  - Speech disorder [Recovered/Resolved]
  - Tachycardia [Recovered/Resolved]
  - Throat irritation [Recovered/Resolved]
  - Throat tightness [Recovered/Resolved]
